FAERS Safety Report 17553995 (Version 1)
Quarter: 2020Q1

REPORT INFORMATION
  Report Type: Spontaneous
  Country: CN (occurrence: CN)
  Receive Date: 20200317
  Receipt Date: 20200317
  Transmission Date: 20200409
  Serious: Yes (Hospitalization, Other)
  Sender: FDA-Public Use
  Company Number: CN-BAXTER-2020BAX005920

PATIENT
  Age: 5 Year
  Sex: Male
  Weight: 16.4 kg

DRUGS (24)
  1. 0.9% SODIUM CHLORIDE INJECTION [Suspect]
     Active Substance: SODIUM CHLORIDE
     Dosage: ONDANSETRON HYDROCHLORIDE 3.50 MG + 0.9% SODIUM CHLORIDE 25 ML, DAY 1-3
     Route: 042
     Dates: start: 20200226, end: 20200228
  2. MESNA. [Suspect]
     Active Substance: MESNA
     Dosage: DOSE RE-INTRODUCED
     Route: 042
     Dates: start: 202003
  3. 0.9% SODIUM CHLORIDE INJECTION [Suspect]
     Active Substance: SODIUM CHLORIDE
     Dosage: ETOPOSIDE 103.50 MG + 0.9% SODIUM CHLORIDE 414 ML, DAY 1-3
     Route: 041
     Dates: start: 20200226, end: 20200228
  4. 0.9% SODIUM CHLORIDE INJECTION [Suspect]
     Active Substance: SODIUM CHLORIDE
     Dosage: DOSE RE-INTRODUCED, ONDANSETRON HYDROCHLORIDE + 0.9% SODIUM CHLORIDE
     Route: 042
     Dates: start: 202003
  5. ETOPOSIDE. [Suspect]
     Active Substance: ETOPOSIDE
     Indication: PRIMITIVE NEUROECTODERMAL TUMOUR
     Dosage: ETOPOSIDE 103.5 MG + 0.9%SODIUM CHLORIDE 414 ML, DAY 1-3
     Route: 041
     Dates: start: 20200226, end: 20200228
  6. ONDANSETRON HYDROCHLORIDE. [Suspect]
     Active Substance: ONDANSETRON HYDROCHLORIDE
     Dosage: DOSE RE-INTRODUCED, ONDANSETRON HYDROCHLORIDE +0.9% SODIUM CHLORIDE
     Route: 042
     Dates: start: 202003
  7. ETOPOSIDE. [Suspect]
     Active Substance: ETOPOSIDE
     Dosage: DOSE RE-INTRODUCED, ETOPOSIDE + 0.9% SODIUM CHLORIDE
     Route: 041
     Dates: start: 202003
  8. HOLOXAN [Suspect]
     Active Substance: IFOSFAMIDE
     Dosage: DOSE RE-INTRODUCED, HOLOXAN + 0.9% SODIUM CHLORIDE
     Route: 041
     Dates: start: 202003
  9. 0.9% SODIUM CHLORIDE INJECTION [Suspect]
     Active Substance: SODIUM CHLORIDE
     Indication: MEDICATION DILUTION
     Dosage: VINCRISTINE SULFATE 1 MG + 0.9% SODIUM CHLORIDE 20 ML, DAY 1
     Route: 042
     Dates: start: 20200226, end: 20200226
  10. 0.9% SODIUM CHLORIDE INJECTION [Suspect]
     Active Substance: SODIUM CHLORIDE
     Dosage: HOLOXAN 2070 MG + 0.9% SODIUM CHLORIDE 259 ML, DAY 1-3
     Route: 041
     Dates: start: 20200226, end: 20200228
  11. DEXAMETHASONE SODIUM PHOSPHATE. [Suspect]
     Active Substance: DEXAMETHASONE SODIUM PHOSPHATE
     Indication: ANTIEMETIC SUPPORTIVE CARE
     Dosage: DAY1-3
     Route: 042
     Dates: start: 20200226, end: 20200228
  12. HOLOXAN [Suspect]
     Active Substance: IFOSFAMIDE
     Indication: PRIMITIVE NEUROECTODERMAL TUMOUR
     Dosage: HOLOXAN 2070 MG + 0.9% SODIUM CHLORIDE 259 ML, DAY 1-3
     Route: 041
     Dates: start: 20200226, end: 20200228
  13. 0.9% SODIUM CHLORIDE INJECTION [Suspect]
     Active Substance: SODIUM CHLORIDE
     Dosage: DOXORUBICIN HYDROCHLORIDE 13.80 MG + 0.9% SODIUM CHLORIDE 276 ML, DAY 1-3
     Route: 041
     Dates: start: 20200226, end: 20200228
  14. 0.9% SODIUM CHLORIDE INJECTION [Suspect]
     Active Substance: SODIUM CHLORIDE
     Dosage: DOSE RE-INTRODUCED, HOLOXAN + 0.9% SODIUM CHLORIDE
     Route: 041
     Dates: start: 202003
  15. DOXORUBICIN HYDROCHLORIDE. [Suspect]
     Active Substance: DOXORUBICIN HYDROCHLORIDE
     Indication: PRIMITIVE NEUROECTODERMAL TUMOUR
     Dosage: DOXORUBICIN HYDROCHLORIDE 13.8 MG + 0.9% SODIUM CHLORIDE 276 ML, DAY 1-3
     Route: 041
     Dates: start: 20200226, end: 20200228
  16. DOXORUBICIN HYDROCHLORIDE. [Suspect]
     Active Substance: DOXORUBICIN HYDROCHLORIDE
     Dosage: DOSE RE-INTRODUCED, DOXORUBICIN HYDROCHLORIDE + 0.9% SODIUM CHLORIDE
     Route: 041
     Dates: start: 202003
  17. VINCRISTINE SULFATE. [Suspect]
     Active Substance: VINCRISTINE SULFATE
     Indication: PRIMITIVE NEUROECTODERMAL TUMOUR
     Dosage: VINCRISTINE SULFATE 1 MG + 0.9% SODIUM CHLORIDE 20 ML, DAY 1
     Route: 042
     Dates: start: 20200226, end: 20200226
  18. ONDANSETRON HYDROCHLORIDE. [Suspect]
     Active Substance: ONDANSETRON HYDROCHLORIDE
     Indication: ANTIEMETIC SUPPORTIVE CARE
     Dosage: ONDANSETRON HYDROCHLORIDE 3.50 MG+0.9% SODIUM CHLORIDE 25 ML, DAY 1-3
     Route: 042
     Dates: start: 20200226, end: 20200228
  19. 0.9% SODIUM CHLORIDE INJECTION [Suspect]
     Active Substance: SODIUM CHLORIDE
     Dosage: DOSE RE-INTRODUCED, DOXORUBICIN HYDROCHLORIDE + 0.9% SODIUM CHLORIDE
     Route: 041
     Dates: start: 202003
  20. 0.9% SODIUM CHLORIDE INJECTION [Suspect]
     Active Substance: SODIUM CHLORIDE
     Dosage: DOSE RE-INTRODUCED, VINCRISTINE SULFATE + 0.9% SODIUM CHLORIDE
     Route: 042
     Dates: start: 202003
  21. DEXAMETHASONE SODIUM PHOSPHATE. [Suspect]
     Active Substance: DEXAMETHASONE SODIUM PHOSPHATE
     Dosage: DOSE RE-INTRODUCED
     Route: 042
     Dates: start: 202003
  22. 0.9% SODIUM CHLORIDE INJECTION [Suspect]
     Active Substance: SODIUM CHLORIDE
     Dosage: DOSE RE-INTRODUCED, ETOPOSIDE + 0.9% SODIUM CHLORIDE
     Route: 041
     Dates: start: 202003
  23. VINCRISTINE SULFATE. [Suspect]
     Active Substance: VINCRISTINE SULFATE
     Dosage: DOSE RE-INTRODUCED, VINCRISTINE SULFATE + 0.9% SODIUM CHLORIDE
     Route: 042
     Dates: start: 202003
  24. MESNA. [Suspect]
     Active Substance: MESNA
     Indication: PROPHYLAXIS
     Dosage: DAY 1-3
     Route: 042
     Dates: start: 20200226, end: 20200228

REACTIONS (3)
  - Cytopenia [Recovering/Resolving]
  - Agranulocytosis [Unknown]
  - Pyrexia [Recovered/Resolved]

NARRATIVE: CASE EVENT DATE: 20200205
